FAERS Safety Report 8091059-1 (Version None)
Quarter: 2012Q1

REPORT INFORMATION
  Report Type: 
  Country: None (occurrence: None)
  Receive Date: 20120131
  Receipt Date: 20120124
  Transmission Date: 20120608
  Serious: Yes (Hospitalization)
  Sender: FDA-Public Use
  Company Number: US-SHIRE-ALL1-2012-00397

PATIENT
  Sex: Female
  Weight: 72.562 kg

DRUGS (1)
  1. LIALDA [Suspect]
     Indication: COLITIS
     Dosage: 2.4 G,(TWO 1.2G TABLETS) 1X/DAY:QD
     Route: 048
     Dates: start: 20110901, end: 20120120

REACTIONS (2)
  - HEADACHE [None]
  - HYPOAESTHESIA [None]
